FAERS Safety Report 5942900-7 (Version None)
Quarter: 2008Q4

REPORT INFORMATION
  Report Type: 
  Country: None (occurrence: None)
  Receive Date: 20081106
  Receipt Date: 20081027
  Transmission Date: 20090506
  Serious: Yes (Other)
  Sender: FDA-Public Use
  Company Number: DE-BRISTOL-MYERS SQUIBB COMPANY-14385793

PATIENT

DRUGS (7)
  1. EFAVIRENZ [Suspect]
  2. ATAZANAVIR SULFATE [Suspect]
  3. TRIZIVIR [Suspect]
  4. NEVIRAPINE [Suspect]
  5. RITONAVIR [Suspect]
  6. FOSAMPRENAVIR CALCIUM [Suspect]
  7. LOPINAVIR AND RITONAVIR [Concomitant]

REACTIONS (1)
  - DRUG RESISTANCE [None]
